FAERS Safety Report 23595886 (Version 1)
Quarter: 2024Q1

REPORT INFORMATION
  Report Type: Spontaneous
  Country: PT (occurrence: PT)
  Receive Date: 20240305
  Receipt Date: 20240305
  Transmission Date: 20240410
  Serious: Yes (Hospitalization, Other)
  Sender: FDA-Public Use
  Company Number: PT-PFIZER INC-2020374454

PATIENT
  Age: 77 Year
  Sex: Female

DRUGS (9)
  1. NAPROXEN [Suspect]
     Active Substance: NAPROXEN
     Indication: Arthralgia
     Dosage: UNK
     Dates: start: 201909
  2. NAPROXEN [Suspect]
     Active Substance: NAPROXEN
     Indication: Osteoarthritis
  3. NAPROXEN [Suspect]
     Active Substance: NAPROXEN
     Indication: Pain
  4. NAPROXEN [Suspect]
     Active Substance: NAPROXEN
     Indication: Arthralgia
  5. CELECOXIB [Suspect]
     Active Substance: CELECOXIB
     Indication: Arthralgia
     Dosage: UNK
     Dates: start: 201909
  6. CELECOXIB [Suspect]
     Active Substance: CELECOXIB
     Indication: Arthritis
  7. CELECOXIB [Suspect]
     Active Substance: CELECOXIB
     Indication: Osteoarthritis
  8. CELECOXIB [Suspect]
     Active Substance: CELECOXIB
     Indication: Pain
  9. CELECOXIB [Suspect]
     Active Substance: CELECOXIB
     Indication: Arthralgia

REACTIONS (10)
  - Eosinophilic pneumonia acute [Recovered/Resolved]
  - Eosinophilia [Recovered/Resolved]
  - Cough [Recovered/Resolved]
  - Alveolitis [Recovered/Resolved]
  - Pyrexia [Recovered/Resolved]
  - Lung opacity [Recovered/Resolved]
  - Leukocytosis [Recovered/Resolved]
  - Dyspnoea [Recovered/Resolved]
  - Eosinophilia [Recovered/Resolved]
  - Respiratory failure [Recovered/Resolved]

NARRATIVE: CASE EVENT DATE: 20191001
